FAERS Safety Report 4903687-X (Version None)
Quarter: 2006Q1

REPORT INFORMATION
  Report Type: 
  Country: None (occurrence: None)
  Receive Date: 20060208
  Receipt Date: 20060119
  Transmission Date: 20060701
  Serious: Yes (Other)
  Sender: FDA-Public Use
  Company Number: PHEH2006US01090

PATIENT
  Age: 62 Year
  Sex: Female
  Weight: 90.249 kg

DRUGS (13)
  1. ZOMETA [Suspect]
     Indication: METASTASES TO BONE
     Dosage: 4 MG, EVERY 4 WEEKS
     Dates: start: 20040211, end: 20050921
  2. LETROZOLE [Concomitant]
     Indication: BREAST CANCER
     Dosage: 2.5MG QD
     Dates: start: 20050330
  3. VALIUM [Concomitant]
     Indication: DEPRESSION
     Dosage: 2MG QD
     Dates: start: 20050330
  4. PREVACID [Concomitant]
     Indication: GASTROOESOPHAGEAL REFLUX DISEASE
     Dosage: 30MG QD
     Dates: start: 20050101
  5. CALAN [Concomitant]
     Indication: HYPERTENSION
     Dosage: 250MG QD
     Dates: start: 20050330
  6. HYZAAR [Concomitant]
     Dosage: UNK QD
     Dates: start: 20050330
  7. GLUCOVANCE [Concomitant]
     Indication: DIABETES MELLITUS
     Dosage: 500MG TID
     Dates: start: 20050330
  8. ACTOS [Concomitant]
     Indication: DIABETES MELLITUS
     Dosage: UNK QD
     Dates: start: 20050330
  9. ACETYLSALICYLIC ACID SRT [Concomitant]
     Indication: HEADACHE
     Dosage: 1TAB QD
     Dates: start: 20040101
  10. EFFEXOR [Concomitant]
     Indication: HYPERTENSION
     Dosage: 150MG QD
     Dates: start: 20050330
  11. HYDROCODONE BITARTRATE [Concomitant]
     Indication: PAIN
     Dosage: 7.5/500MG PRN
     Dates: start: 20051230
  12. URSO [Concomitant]
     Indication: HYPERCHOLESTEROLAEMIA
     Dosage: 250MG QD
     Dates: start: 20050330
  13. NEURONTIN [Concomitant]
     Indication: NEUROPATHY
     Dosage: 300MG TID
     Dates: start: 20050503

REACTIONS (2)
  - OSTEONECROSIS [None]
  - TOOTH EXTRACTION [None]
